FAERS Safety Report 12544712 (Version 1)
Quarter: 2016Q3

REPORT INFORMATION
  Report Type: Report from Study
  Country: CO (occurrence: CO)
  Receive Date: 20160711
  Receipt Date: 20160711
  Transmission Date: 20161109
  Serious: Yes (Death)
  Sender: FDA-Public Use
  Company Number: PHHY2016CO094820

PATIENT
  Age: 7 Year
  Sex: Male

DRUGS (1)
  1. TOBI [Suspect]
     Active Substance: TOBRAMYCIN
     Indication: CYSTIC FIBROSIS
     Dosage: 300 MG, Q12H
     Route: 055
     Dates: start: 20130910

REACTIONS (1)
  - Death [Fatal]

NARRATIVE: CASE EVENT DATE: 20160707
